FAERS Safety Report 17446104 (Version 1)
Quarter: 2020Q1

REPORT INFORMATION
  Report Type: Spontaneous
  Country: US (occurrence: US)
  Receive Date: 20200221
  Receipt Date: 20200221
  Transmission Date: 20200409
  Serious: No
  Sender: FDA-Public Use
  Company Number: US-NXDC-GLE-0008-2020

PATIENT
  Age: 69 Year
  Sex: Female
  Weight: 35 kg

DRUGS (1)
  1. GLEOLAN [Suspect]
     Active Substance: AMINOLEVULINIC ACID HYDROCHLORIDE
     Indication: GLIOBLASTOMA
     Dates: start: 20200131, end: 20200131

REACTIONS (3)
  - Device operational issue [Recovered/Resolved]
  - Overdose [Unknown]
  - Drug ineffective [Unknown]

NARRATIVE: CASE EVENT DATE: 20200131
